FAERS Safety Report 4773040-0 (Version None)
Quarter: 2005Q3

REPORT INFORMATION
  Report Type: 
  Country: None (occurrence: None)
  Receive Date: 20050916
  Receipt Date: 20050909
  Transmission Date: 20060218
  Serious: Yes (Other)
  Sender: FDA-Public Use
  Company Number: US-2004-036774

PATIENT
  Age: 48 Year
  Sex: Female
  Weight: 67.1 kg

DRUGS (8)
  1. CLIMARA [Suspect]
     Indication: HORMONE REPLACEMENT THERAPY
     Dosage: 0.1 MG/D, CONT, TRANSDERMAL
     Route: 062
     Dates: start: 20020101, end: 20021001
  2. ESTRADIOL [Suspect]
     Indication: HORMONE REPLACEMENT THERAPY
     Dosage: 0.1 MG/D, CONT, TRANSDERMAL
     Route: 062
     Dates: start: 20000101, end: 20010101
  3. VIVELLE-DOT [Suspect]
     Indication: HORMONE REPLACEMENT THERAPY
     Dosage: 0.05 MG, TRANSDERMAL
     Route: 062
     Dates: start: 20000101, end: 20000101
  4. ESTRADERM [Suspect]
     Indication: HORMONE REPLACEMENT THERAPY
     Dosage: 0.05 MG, TRANSDERMAL
     Route: 062
     Dates: start: 19900101, end: 19990101
  5. PROVERA [Suspect]
     Indication: HORMONE REPLACEMENT THERAPY
     Dosage: 10 MG, ORAL
     Route: 048
     Dates: start: 19890101, end: 19990101
  6. PREMARIN [Suspect]
     Indication: HORMONE REPLACEMENT THERAPY
     Dosage: 1.25 MG, ORAL
     Route: 048
     Dates: start: 19890101, end: 19900101
  7. BUTALBITAL [Concomitant]
  8. ACIPHEX [Concomitant]

REACTIONS (23)
  - ACNE [None]
  - BREAST CANCER FEMALE [None]
  - BREAST CYST [None]
  - BREAST MICROCALCIFICATION [None]
  - CHEST PAIN [None]
  - CHRONIC SINUSITIS [None]
  - DRUG INEFFECTIVE [None]
  - DRUG INTOLERANCE [None]
  - FATIGUE [None]
  - FIBROCYSTIC BREAST DISEASE [None]
  - FOLLICULITIS [None]
  - GASTROOESOPHAGEAL REFLUX DISEASE [None]
  - HIATUS HERNIA [None]
  - HOT FLUSH [None]
  - IMPAIRED HEALING [None]
  - LYMPHADENOPATHY [None]
  - MIGRAINE [None]
  - NASAL SEPTUM DEVIATION [None]
  - PALPITATIONS [None]
  - POST PROCEDURAL COMPLICATION [None]
  - POST PROCEDURAL NAUSEA [None]
  - POST PROCEDURAL VOMITING [None]
  - PROCEDURAL PAIN [None]
